FAERS Safety Report 22295116 (Version 4)
Quarter: 2025Q1

REPORT INFORMATION
  Report Type: Report from Study
  Country: CA (occurrence: CA)
  Receive Date: 20230508
  Receipt Date: 20250318
  Transmission Date: 20250409
  Serious: Yes (Other)
  Sender: TAKEDA
  Company Number: CA-TAKEDA-2023TUS045358

PATIENT
  Sex: Male

DRUGS (5)
  1. VEDOLIZUMAB [Suspect]
     Active Substance: VEDOLIZUMAB
     Indication: Colitis ulcerative
  2. VEDOLIZUMAB [Suspect]
     Active Substance: VEDOLIZUMAB
     Indication: Colitis ulcerative
     Dosage: 108 MILLIGRAM, Q2WEEKS
     Dates: start: 20230109
  3. PREDNISONE [Concomitant]
     Active Substance: PREDNISONE
  4. MESALAMINE [Concomitant]
     Active Substance: MESALAMINE
     Dosage: 2.4 GRAM, BID
     Dates: start: 20220530
  5. Salofalk [Concomitant]

REACTIONS (4)
  - Colitis ulcerative [Recovering/Resolving]
  - Product distribution issue [Unknown]
  - Haemorrhoidal haemorrhage [Unknown]
  - Frequent bowel movements [Unknown]
